FAERS Safety Report 5619267-7 (Version None)
Quarter: 2008Q1

REPORT INFORMATION
  Report Type: 
  Country: None (occurrence: None)
  Receive Date: 20080205
  Receipt Date: 20080122
  Transmission Date: 20080703
  Serious: Yes (Hospitalization)
  Sender: FDA-Public Use
  Company Number: S08-FRA-00349-01

PATIENT
  Age: 43 Year
  Sex: Male

DRUGS (9)
  1. ESCITALOPRAM [Suspect]
     Dosage: 40 MG QD PO
     Route: 048
     Dates: end: 20080122
  2. CLOPIXOL (ZUCLOPENTHIXOL HYDROCHLORIDE) [Suspect]
     Indication: PSYCHOTIC DISORDER
     Dosage: 25 MG QID PO
     Route: 048
     Dates: start: 20061201, end: 20080122
  3. ALEPSAL [Concomitant]
  4. DEPAMIDE (VALPROMIDE) [Concomitant]
  5. DIPIPERON (PIPAMPERONE) [Concomitant]
  6. LEPTICUR (TROPATEPINE HYDROCHLORIDE) [Concomitant]
  7. MOVICOL [Concomitant]
  8. SCOPOLAMINE [Concomitant]
  9. OXAZEPAM [Concomitant]

REACTIONS (2)
  - HYPOTHERMIA [None]
  - OVERDOSE [None]
